FAERS Safety Report 20205551 (Version 3)
Quarter: 2022Q1

REPORT INFORMATION
  Report Type: Spontaneous
  Country: IT (occurrence: IT)
  Receive Date: 20211220
  Receipt Date: 20220115
  Transmission Date: 20220423
  Serious: Yes (Other)
  Sender: FDA-Public Use
  Company Number: IT-NOVARTISPH-NVSC2021IT286873

PATIENT
  Age: 12 Year
  Sex: Male
  Weight: 42.8 kg

DRUGS (1)
  1. OMNITROPE [Suspect]
     Active Substance: SOMATROPIN
     Indication: Growth hormone deficiency
     Dosage: 1.3 MG, QD
     Route: 058
     Dates: start: 20210920, end: 20211112

REACTIONS (8)
  - Intracranial pressure increased [Unknown]
  - Papilloedema [Recovered/Resolved]
  - Visual field defect [Recovered/Resolved]
  - Vomiting [Recovered/Resolved]
  - Nausea [Recovered/Resolved]
  - Tooth development disorder [Unknown]
  - Irritable bowel syndrome [Unknown]
  - Bone development abnormal [Unknown]

NARRATIVE: CASE EVENT DATE: 20211111
